FAERS Safety Report 7569051-2 (Version None)
Quarter: 2011Q2

REPORT INFORMATION
  Report Type: 
  Country: None (occurrence: None)
  Receive Date: 20110623
  Receipt Date: 20110609
  Transmission Date: 20111010
  Serious: Yes (Hospitalization)
  Sender: FDA-Public Use
  Company Number: US-CELGENEUS-163-21880-11061471

PATIENT
  Sex: Female

DRUGS (2)
  1. REVLIMID [Suspect]
     Indication: MULTIPLE MYELOMA
     Dosage: 25 MILLIGRAM
     Route: 048
     Dates: start: 20090701, end: 20110501
  2. REVLIMID [Suspect]
     Dosage: 25 MILLIGRAM
     Route: 048
     Dates: start: 20110610

REACTIONS (2)
  - ACUTE PSYCHOSIS [None]
  - SCHIZOAFFECTIVE DISORDER [None]
